FAERS Safety Report 6730862-4 (Version None)
Quarter: 2010Q2

REPORT INFORMATION
  Report Type: 
  Country: None (occurrence: None)
  Receive Date: 20100514
  Receipt Date: 20100505
  Transmission Date: 20101027
  Serious: Yes (Hospitalization)
  Sender: FDA-Public Use
  Company Number: LEO-2010-00386

PATIENT
  Age: 33 Year
  Sex: Female

DRUGS (8)
  1. INNOHEP [Suspect]
     Indication: ABORTION SPONTANEOUS
     Dosage: 4500 IU (1 IN 1 D)
     Dates: start: 20030207, end: 20031121
  2. INNOHEP [Suspect]
     Indication: FACTOR V LEIDEN MUTATION
     Dosage: 4500 IU (1 IN 1 D)
     Dates: start: 20030207, end: 20031121
  3. INNOHEP [Suspect]
     Indication: PROPHYLAXIS
     Dosage: 4500 IU (1 IN 1 D)
     Dates: start: 20030207, end: 20031121
  4. AMPICILLIN [Concomitant]
  5. VITAMIN SUPPL (VITAMINS NOS) [Concomitant]
  6. ACYCLOVIR [Concomitant]
  7. ACETAMINOPHEN [Concomitant]
  8. N20 (NITROUS OXIDE) [Concomitant]

REACTIONS (3)
  - CONTUSION [None]
  - DRUG EXPOSURE DURING PREGNANCY [None]
  - RETAINED PLACENTA OR MEMBRANES [None]
